FAERS Safety Report 5731474-1 (Version None)
Quarter: 2008Q2

REPORT INFORMATION
  Report Type: 
  Country: None (occurrence: None)
  Receive Date: 20080508
  Receipt Date: 20080428
  Transmission Date: 20081010
  Serious: Yes (Hospitalization, Other)
  Sender: FDA-Public Use
  Company Number: HQWYE087713AUG03

PATIENT
  Sex: Female
  Weight: 118.95 kg

DRUGS (5)
  1. PREMPRO [Suspect]
     Indication: NIGHT SWEATS
     Dosage: 0.625MG/2.5MG
     Route: 048
     Dates: start: 20000801, end: 20020901
  2. PREMPRO [Suspect]
     Indication: HOT FLUSH
  3. TOPROL-XL [Concomitant]
  4. ACETYLSALICYLIC ACID SRT [Concomitant]
  5. ZIAC [Concomitant]

REACTIONS (5)
  - CARDIAC DISORDER [None]
  - CHEST PAIN [None]
  - DEPRESSION [None]
  - HYPERTENSION [None]
  - SUICIDAL IDEATION [None]
